FAERS Safety Report 6404128-6 (Version None)
Quarter: 2009Q4

REPORT INFORMATION
  Report Type: 
  Country: None (occurrence: None)
  Receive Date: 20091016
  Receipt Date: 20090911
  Transmission Date: 20100525
  Serious: Yes (Death)
  Sender: FDA-Public Use
  Company Number: US-ALEXION-A200900710

PATIENT
  Sex: Male

DRUGS (15)
  1. SOLIRIS [Suspect]
     Indication: PAROXYSMAL NOCTURNAL HAEMOGLOBINURIA
     Dosage: 600 MG, UNK
     Route: 042
     Dates: start: 20080320, end: 20080411
  2. SOLIRIS [Suspect]
     Dosage: 900 MG, UNK
     Route: 042
     Dates: start: 20080416, end: 20080612
  3. SOLIRIS [Suspect]
     Dosage: 900 MG, UNK
     Route: 042
     Dates: start: 20080917, end: 20081114
  4. SOLIRIS [Suspect]
     Dosage: 900 MG, UNK
     Route: 042
     Dates: start: 20081219, end: 20090219
  5. VICODIN [Concomitant]
     Dosage: 5/500 MG, 1-2 Q6H, PRN
     Route: 048
  6. FOLIC ACID [Concomitant]
     Dosage: 1 MG, QD
     Route: 048
  7. ALLOPURINOL [Concomitant]
     Dosage: 150 MG, QD
     Route: 048
  8. ASPIRIN [Concomitant]
     Dosage: 81 MG, QD
     Route: 048
  9. RENAGEL                            /01459901/ [Concomitant]
     Dosage: 800 MG, WITH MEALS
     Route: 048
  10. LOPRESSOR [Concomitant]
     Dosage: 12.5 MG, BID
     Route: 048
  11. LASIX [Concomitant]
     Dosage: 40 MG, QD
     Route: 048
  12. NORTRIPTYLINE [Concomitant]
     Route: 048
  13. DECADRON [Concomitant]
     Dosage: 4 MG, QD
     Route: 048
  14. MORPHINE [Concomitant]
     Dosage: 10 MG, PRN
     Route: 048
  15. EXJADE [Concomitant]
     Indication: IRON OVERLOAD

REACTIONS (4)
  - CARDIAC FAILURE ACUTE [None]
  - DRUG INEFFECTIVE [None]
  - IRON OVERLOAD [None]
  - SERUM FERRITIN INCREASED [None]
